FAERS Safety Report 5796938-3 (Version None)
Quarter: 2008Q2

REPORT INFORMATION
  Report Type: 
  Country: None (occurrence: None)
  Receive Date: 20080618
  Receipt Date: 20070619
  Transmission Date: 20081010
  Serious: Yes (Other)
  Sender: FDA-Public Use
  Company Number: 200713029US

PATIENT
  Age: 58 Year
  Sex: Female

DRUGS (13)
  1. LANTUS [Suspect]
     Indication: TYPE 1 DIABETES MELLITUS
     Dosage: 10 U QAM INJ
     Dates: start: 20060501
  2. INSULIN DETEMIR (LEVEMIR) [Concomitant]
  3. REGULAR INSULIN [Concomitant]
  4. LEVOTHYROXINE SODIUM (LEVOTHYROID) [Concomitant]
  5. CAPSICUM /00899201/ [Concomitant]
  6. CHROMIUM PICOLINATE [Concomitant]
  7. POTASSIUM GLUCONATE TAB [Concomitant]
  8. GOTU KOLA [Concomitant]
  9. CURCUMA LONGA [Concomitant]
  10. MAGNESIUM, CALCIUM (CALCIUM W/MAGNESIUM) [Concomitant]
  11. PYRIDOXINE HYDROCHLORIDE (VITAMIN B 6) [Concomitant]
  12. FISH OIL [Concomitant]
  13. UBIDECARENONE (CO Q-10) [Concomitant]

REACTIONS (4)
  - BLOOD GLUCOSE INCREASED [None]
  - DRUG INEFFECTIVE [None]
  - GLYCOSYLATED HAEMOGLOBIN INCREASED [None]
  - HYPOGLYCAEMIA [None]
